FAERS Safety Report 16779568 (Version 1)
Quarter: 2019Q3

REPORT INFORMATION
  Report Type: Spontaneous
  Country: GB (occurrence: GB)
  Receive Date: 20190906
  Receipt Date: 20190906
  Transmission Date: 20191005
  Serious: Yes (Life-Threatening, Hospitalization)
  Sender: FDA-Public Use
  Company Number: GB-TEVA-2019-GB-1105148

PATIENT
  Age: 34 Year
  Sex: Male

DRUGS (1)
  1. LIDOCAINE. [Suspect]
     Active Substance: LIDOCAINE
     Indication: ANAESTHESIA
     Route: 065

REACTIONS (5)
  - Drug hypersensitivity [Recovering/Resolving]
  - Unresponsive to stimuli [Recovering/Resolving]
  - Respiratory tract oedema [Recovering/Resolving]
  - Tracheal deviation [Recovering/Resolving]
  - Obstructive airways disorder [Recovering/Resolving]
